FAERS Safety Report 18992650 (Version 1)
Quarter: 2021Q1

REPORT INFORMATION
  Report Type: Spontaneous
  Country: US (occurrence: US)
  Receive Date: 20210310
  Receipt Date: 20210310
  Transmission Date: 20210420
  Serious: Yes (Other)
  Sender: FDA-Public Use
  Company Number: US-ASTRAZENECA-2021A102625

PATIENT
  Age: 67 Year
  Sex: Female
  Weight: 66.2 kg

DRUGS (41)
  1. DEXILANT [Suspect]
     Active Substance: DEXLANSOPRAZOLE
     Indication: GASTROOESOPHAGEAL REFLUX DISEASE
     Route: 065
     Dates: start: 201404, end: 201407
  2. AMLODIPINE [Concomitant]
     Active Substance: AMLODIPINE BESYLATE
     Indication: BLOOD PRESSURE ABNORMAL
     Dates: start: 20190511
  3. NASONEX [Concomitant]
     Active Substance: MOMETASONE FUROATE
  4. TIZANIDINE. [Concomitant]
     Active Substance: TIZANIDINE
  5. PREVACID [Suspect]
     Active Substance: LANSOPRAZOLE
     Indication: GASTROOESOPHAGEAL REFLUX DISEASE
     Route: 065
     Dates: start: 2014, end: 20180429
  6. FAMOTIDINE. [Concomitant]
     Active Substance: FAMOTIDINE
     Dates: start: 20200127
  7. TUMS [Concomitant]
     Active Substance: CALCIUM CARBONATE
     Dates: start: 2015
  8. MIRAPEX [Concomitant]
     Active Substance: PRAMIPEXOLE DIHYDROCHLORIDE
  9. HYOSCYAMINE SULFATE. [Concomitant]
     Active Substance: HYOSCYAMINE SULFATE
  10. PREVACID [Suspect]
     Active Substance: LANSOPRAZOLE
     Indication: GASTROOESOPHAGEAL REFLUX DISEASE
     Dosage: GENERIC
     Route: 065
     Dates: start: 20140505, end: 2019
  11. PRAMIPEXOLE. [Concomitant]
     Active Substance: PRAMIPEXOLE
     Indication: PARKINSON^S DISEASE
     Dates: start: 20100112, end: 20190511
  12. DESONIDE. [Concomitant]
     Active Substance: DESONIDE
  13. LOTEMAX [Concomitant]
     Active Substance: LOTEPREDNOL ETABONATE
  14. ALPRAZOLAM. [Concomitant]
     Active Substance: ALPRAZOLAM
     Indication: ANXIETY
     Dates: start: 20080121, end: 20190511
  15. LOSARTAN. [Concomitant]
     Active Substance: LOSARTAN
     Indication: BLOOD PRESSURE ABNORMAL
     Dates: start: 20190415
  16. SEROQUEL [Concomitant]
     Active Substance: QUETIAPINE FUMARATE
  17. FOLIC ACID. [Concomitant]
     Active Substance: FOLIC ACID
  18. RESTASIS [Concomitant]
     Active Substance: CYCLOSPORINE
  19. DICLOFENAC SODIUM. [Concomitant]
     Active Substance: DICLOFENAC SODIUM
  20. MEPERITAB [Concomitant]
     Active Substance: MEPERIDINE HYDROCHLORIDE
  21. AMOX [Concomitant]
     Active Substance: UNSPECIFIED INGREDIENT
  22. CLINDAMYCIN. [Concomitant]
     Active Substance: CLINDAMYCIN
     Indication: INFECTION
     Dates: start: 20100806, end: 20190416
  23. AMITIZA [Concomitant]
     Active Substance: LUBIPROSTONE
  24. HYDROCODONE [Concomitant]
     Active Substance: HYDROCODONE
  25. ARICEPT [Concomitant]
     Active Substance: DONEPEZIL HYDROCHLORIDE
  26. ZYLET [Concomitant]
     Active Substance: LOTEPREDNOL ETABONATE\TOBRAMYCIN
  27. LYRICA [Concomitant]
     Active Substance: PREGABALIN
  28. ERYTHROMYCIN. [Concomitant]
     Active Substance: ERYTHROMYCIN
  29. AZELASTINE. [Concomitant]
     Active Substance: AZELASTINE HYDROCHLORIDE
  30. NEXIUM [Suspect]
     Active Substance: ESOMEPRAZOLE MAGNESIUM
     Indication: GASTROOESOPHAGEAL REFLUX DISEASE
     Route: 048
     Dates: start: 20080115, end: 20140407
  31. CYCLOBENZAPRINE. [Concomitant]
     Active Substance: CYCLOBENZAPRINE
     Indication: MUSCLE RELAXANT THERAPY
     Dates: start: 20080122, end: 20180207
  32. MELOXICAM. [Concomitant]
     Active Substance: MELOXICAM
     Indication: ANTIINFLAMMATORY THERAPY
     Dates: start: 20110518, end: 20190115
  33. PATANASE [Concomitant]
     Active Substance: OLOPATADINE HYDROCHLORIDE
  34. PATADAY [Concomitant]
     Active Substance: OLOPATADINE HYDROCHLORIDE
  35. PROTONIX [Suspect]
     Active Substance: PANTOPRAZOLE SODIUM
     Indication: GASTROOESOPHAGEAL REFLUX DISEASE
     Route: 065
     Dates: start: 20090706, end: 20100411
  36. ACIPHEX [Suspect]
     Active Substance: RABEPRAZOLE SODIUM
     Indication: GASTROOESOPHAGEAL REFLUX DISEASE
     Route: 065
     Dates: start: 20080311, end: 20100712
  37. BUDEPRION [Concomitant]
     Active Substance: BUPROPION HYDROCHLORIDE
     Indication: ANTIDEPRESSANT THERAPY
     Dates: start: 20080101, end: 20190115
  38. TYLENOL [Concomitant]
     Active Substance: ACETAMINOPHEN
     Dates: start: 1967
  39. ZYMAR [Concomitant]
     Active Substance: GATIFLOXACIN
  40. PROMETHAZINE [Concomitant]
     Active Substance: PROMETHAZINE HYDROCHLORIDE
  41. NITROFURANTOIN. [Concomitant]
     Active Substance: NITROFURANTOIN

REACTIONS (2)
  - Chronic kidney disease [Not Recovered/Not Resolved]
  - Renal failure [Unknown]

NARRATIVE: CASE EVENT DATE: 2016
